FAERS Safety Report 9353844 (Version 1)
Quarter: 2013Q2

REPORT INFORMATION
  Report Type: Spontaneous
  Country: US (occurrence: US)
  Receive Date: 20130618
  Receipt Date: 20130618
  Transmission Date: 20140414
  Serious: No
  Sender: FDA-Public Use
  Company Number: US-TEVA-411921USA

PATIENT
  Sex: 0

DRUGS (1)
  1. PLAN B ONE-STEP [Suspect]
     Indication: CONTRACEPTION
     Route: 048
     Dates: start: 20130608, end: 20130608

REACTIONS (1)
  - Abdominal pain upper [Unknown]
